FAERS Safety Report 5446687-6 (Version None)
Quarter: 2007Q3

REPORT INFORMATION
  Report Type: 
  Country: None (occurrence: None)
  Receive Date: 20070907
  Receipt Date: 20070828
  Transmission Date: 20080115
  Serious: Yes (Other)
  Sender: FDA-Public Use
  Company Number: CN-PFIZER INC-2007071864

PATIENT
  Age: 39 Year
  Sex: Male

DRUGS (2)
  1. VIAGRA [Suspect]
     Route: 048
     Dates: start: 20070824, end: 20070824
  2. PARACETAMOL [Suspect]
     Indication: NASOPHARYNGITIS
     Route: 048

REACTIONS (6)
  - COUGH [None]
  - HAEMATEMESIS [None]
  - PALPITATIONS [None]
  - SOMNOLENCE [None]
  - SPUTUM ABNORMAL [None]
  - VOMITING [None]
